FAERS Safety Report 5085060-X (Version None)
Quarter: 2006Q3

REPORT INFORMATION
  Report Type: 
  Country: None (occurrence: None)
  Receive Date: 20060815
  Receipt Date: 20060809
  Transmission Date: 20061208
  Serious: Yes (Other)
  Sender: FDA-Public Use
  Company Number: C2006-200-814

PATIENT
  Age: 53 Year
  Sex: Male

DRUGS (5)
  1. CEFAZOLIN [Suspect]
     Indication: PROPHYLAXIS
     Dosage: 1G, IV 2X
     Route: 042
     Dates: start: 20060216, end: 20060217
  2. DOCUSATE SODIUM + SENNA [Concomitant]
  3. ZETIA [Concomitant]
  4. SIMVASTATIN [Concomitant]
  5. D5W + NACL [Concomitant]

REACTIONS (5)
  - CHILLS [None]
  - INCISION SITE COMPLICATION [None]
  - INCISION SITE OEDEMA [None]
  - SKIN DISORDER [None]
  - WOUND SECRETION [None]
